FAERS Safety Report 16573778 (Version 2)
Quarter: 2019Q4

REPORT INFORMATION
  Report Type: Spontaneous
  Country: IT (occurrence: IT)
  Receive Date: 20190715
  Receipt Date: 20191016
  Transmission Date: 20200122
  Serious: Yes (Other)
  Sender: FDA-Public Use
  Company Number: IT-PFIZER INC-2019295593

PATIENT
  Age: 68 Year
  Sex: Female

DRUGS (5)
  1. CARBOPLATIN. [Concomitant]
     Active Substance: CARBOPLATIN
     Dosage: UNK, EVERY 3 WEEKS (AUC 5)(FOR 6 CYCLES)
     Dates: start: 20161110, end: 20170317
  2. PACLITAXEL. [Concomitant]
     Active Substance: PACLITAXEL
     Indication: OVARIAN CANCER
     Dosage: 175 MG/M2, CYCLIC (FOR 6 CYCLES)
     Dates: start: 20150218, end: 20150618
  3. CARBOPLATIN. [Concomitant]
     Active Substance: CARBOPLATIN
     Indication: OVARIAN CANCER
     Dosage: UNK, EVERY 3 WEEKS (AUC 5 )(FOR 6 CYCLES)
     Dates: start: 20150218, end: 20150618
  4. PACLITAXEL. [Concomitant]
     Active Substance: PACLITAXEL
     Dosage: 175 MG/M2, EVERY 3 WEEKS (FOR 6 CYCLES)
     Dates: start: 20161110, end: 20170317
  5. BEVACIZUMAB. [Suspect]
     Active Substance: BEVACIZUMAB
     Indication: OVARIAN CANCER
     Dosage: 15 MG/KG, EVERY 3 WEEKS (FOR 6 CYCLES ADDED FROM SECOND CYCLE, MAINTENANCE THERAPY, 3 CYCLES)
     Dates: start: 2015, end: 20150827

REACTIONS (2)
  - Hypertension [Recovered/Resolved]
  - Proteinuria [Recovered/Resolved]

NARRATIVE: CASE EVENT DATE: 2015
